FAERS Safety Report 7338244-1 (Version None)
Quarter: 2011Q1

REPORT INFORMATION
  Report Type: 
  Country: None (occurrence: None)
  Receive Date: 20110308
  Receipt Date: 20110304
  Transmission Date: 20110831
  Serious: Yes (Life-Threatening, Hospitalization, Other)
  Sender: FDA-Public Use
  Company Number: GXKR2011DE01118

PATIENT
  Age: 56 Year
  Sex: Female
  Weight: 71 kg

DRUGS (6)
  1. ALLOPURINOL HEXAL [Suspect]
     Dosage: 100 MG, QD
     Route: 048
     Dates: start: 20101007, end: 20101011
  2. LORAZEPAM [Suspect]
     Dosage: 1-2 MG/DAILY; BREAKS: 11-13 AND 15-20 OCT 2010
     Route: 048
     Dates: start: 20101008, end: 20101107
  3. ZIENAM [Suspect]
     Indication: PNEUMONIA
     Dosage: 1-3X DAILY; BREAK: 18-25 OCT 2010
     Route: 042
     Dates: start: 20101012, end: 20101029
  4. ROCEPHIN [Suspect]
     Indication: PNEUMONIA
     Dosage: 2000 MG, QD
     Route: 042
     Dates: start: 20101007, end: 20101014
  5. KLACID                                  /IRE/ [Suspect]
     Indication: PNEUMONIA
     Dosage: 500 MG, BID
     Route: 042
     Dates: start: 20101007, end: 20101007
  6. LORAZEPAM [Suspect]
     Dosage: 2 MG, ONCE/SINGLE
     Route: 042
     Dates: start: 20101007, end: 20101007

REACTIONS (11)
  - SEPSIS [None]
  - DIALYSIS [None]
  - RENAL CYST [None]
  - ASPARTATE AMINOTRANSFERASE INCREASED [None]
  - BLOOD ALKALINE PHOSPHATASE INCREASED [None]
  - GAMMA-GLUTAMYLTRANSFERASE INCREASED [None]
  - RENAL FAILURE ACUTE [None]
  - BLOOD CREATININE INCREASED [None]
  - HEPATITIS ACUTE [None]
  - OLIGURIA [None]
  - ALANINE AMINOTRANSFERASE INCREASED [None]
